FAERS Safety Report 4841958-6 (Version None)
Quarter: 2005Q4

REPORT INFORMATION
  Report Type: 
  Country: None (occurrence: None)
  Receive Date: 20051130
  Receipt Date: 20051012
  Transmission Date: 20060501
  Serious: No
  Sender: FDA-Public Use
  Company Number: US-GLAXOSMITHKLINE-A0578032A

PATIENT
  Sex: Female

DRUGS (7)
  1. WELLBUTRIN XL [Suspect]
     Dosage: 300MG PER DAY
     Route: 048
  2. WELLBUTRIN SR [Suspect]
     Indication: DEPRESSION
     Dosage: 100MG PER DAY
     Route: 048
  3. TENORMIN [Concomitant]
  4. PROZAC [Concomitant]
  5. COUMADIN [Concomitant]
  6. XANAX [Concomitant]
  7. CLARINEX [Concomitant]

REACTIONS (2)
  - ASTHENIA [None]
  - HYPERHIDROSIS [None]
